FAERS Safety Report 12793763 (Version 1)
Quarter: 2016Q3

REPORT INFORMATION
  Report Type: Spontaneous
  Country: US (occurrence: US)
  Receive Date: 20160929
  Receipt Date: 20160929
  Transmission Date: 20161109
  Serious: No
  Sender: FDA-Public Use
  Company Number: US-JAZZ-2016-US-011730

PATIENT
  Sex: Female

DRUGS (43)
  1. XYREM [Suspect]
     Active Substance: SODIUM OXYBATE
     Dosage: 5 G, BID
     Route: 048
     Dates: start: 200902
  2. MAXALT [Concomitant]
     Active Substance: RIZATRIPTAN BENZOATE
  3. PROPRANOLOL [Concomitant]
     Active Substance: PROPRANOLOL\PROPRANOLOL HYDROCHLORIDE
  4. LEVOTHYROXINE SODIUM. [Concomitant]
     Active Substance: LEVOTHYROXINE SODIUM
  5. LOTEMAX [Concomitant]
     Active Substance: LOTEPREDNOL ETABONATE
  6. FLONASE [Concomitant]
     Active Substance: FLUTICASONE PROPIONATE
  7. CENTRUM SILVER [Concomitant]
     Active Substance: MINERALS\VITAMINS
  8. AZITHROMYCIN ANHYDROUS. [Concomitant]
     Active Substance: AZITHROMYCIN ANHYDROUS
  9. REFRESH [Concomitant]
     Active Substance: UNSPECIFIED INGREDIENT
  10. ZYRTEC [Concomitant]
     Active Substance: CETIRIZINE HYDROCHLORIDE
  11. XYREM [Suspect]
     Active Substance: SODIUM OXYBATE
     Indication: NARCOLEPSY
     Dosage: 2.25 G, BID
     Route: 048
     Dates: start: 200408, end: 200410
  12. METHYLPHENIDATE. [Concomitant]
     Active Substance: METHYLPHENIDATE
  13. PRIMIDONE. [Concomitant]
     Active Substance: PRIMIDONE
  14. ERYTHROMYCIN. [Concomitant]
     Active Substance: ERYTHROMYCIN
  15. METRONIDAZOLE. [Concomitant]
     Active Substance: METRONIDAZOLE
  16. BENZONATATE. [Concomitant]
     Active Substance: BENZONATATE
  17. FLUVIRIN NOS [Concomitant]
     Active Substance: INFLUENZA VIRUS VACCINE
  18. GENTEAL MILD [Concomitant]
     Active Substance: HYPROMELLOSE 2910 (4000 MPA.S)
  19. MUCINEX D [Concomitant]
     Active Substance: GUAIFENESIN\PSEUDOEPHEDRINE HYDROCHLORIDE
  20. DICYCLOMINE [Concomitant]
     Active Substance: DICYCLOMINE HYDROCHLORIDE
  21. EFFEXOR [Concomitant]
     Active Substance: VENLAFAXINE HYDROCHLORIDE
  22. RITALIN [Concomitant]
     Active Substance: METHYLPHENIDATE HYDROCHLORIDE
  23. MELOXICAM. [Concomitant]
     Active Substance: MELOXICAM
  24. ZOFRAN [Concomitant]
     Active Substance: ONDANSETRON HYDROCHLORIDE
  25. ALPRAZOLAM. [Concomitant]
     Active Substance: ALPRAZOLAM
  26. OXYBUTYNIN CHLORIDE. [Concomitant]
     Active Substance: OXYBUTYNIN CHLORIDE
  27. XYREM [Suspect]
     Active Substance: SODIUM OXYBATE
     Indication: CATAPLEXY
     Dosage: DOSE ADJUSTMENTS
     Route: 048
     Dates: start: 200410, end: 200902
  28. MODAFINIL. [Concomitant]
     Active Substance: MODAFINIL
  29. TOPIRAMATE. [Concomitant]
     Active Substance: TOPIRAMATE
  30. GUAIFENESIN. [Concomitant]
     Active Substance: GUAIFENESIN
  31. PROMETHAZINE [Concomitant]
     Active Substance: PROMETHAZINE\PROMETHAZINE HYDROCHLORIDE
  32. NORCO [Concomitant]
     Active Substance: ACETAMINOPHEN\HYDROCODONE BITARTRATE
  33. OXYCODONE [Concomitant]
     Active Substance: OXYCODONE
  34. NAPROXEN. [Concomitant]
     Active Substance: NAPROXEN
  35. WELLBUTRIN [Concomitant]
     Active Substance: BUPROPION HYDROCHLORIDE
  36. IBUPROFEN. [Concomitant]
     Active Substance: IBUPROFEN
  37. ALIGN [Concomitant]
     Active Substance: BIFIDOBACTERIUM LONGUM SUBSP. INFANTIS
  38. CALCIUM 600+D [Concomitant]
     Active Substance: CALCIUM\VITAMIN D
  39. REFRESH P.M. [Concomitant]
     Active Substance: MINERAL OIL\PETROLATUM
  40. CLONAZEPAM. [Concomitant]
     Active Substance: CLONAZEPAM
  41. ASPIRIN. [Concomitant]
     Active Substance: ASPIRIN
  42. CALTRATE WITH VITAMIN D [Concomitant]
     Active Substance: CALCIUM CARBONATE\CHOLECALCIFEROL
  43. PREDNISOLONE. [Concomitant]
     Active Substance: PREDNISOLONE

REACTIONS (1)
  - Back disorder [Unknown]
